FAERS Safety Report 11950883 (Version 1)
Quarter: 2016Q1

REPORT INFORMATION
  Report Type: Spontaneous
  Country: US (occurrence: None)
  Receive Date: 20160122
  Receipt Date: 20160122
  Transmission Date: 20160526
  Serious: No
  Sender: FDA-Public Use
  Company Number: None

PATIENT

DRUGS (2)
  1. CYMBALTA [Suspect]
     Active Substance: DULOXETINE HYDROCHLORIDE
  2. AMITRIPTYLINE HCL [Suspect]
     Active Substance: AMITRIPTYLINE

REACTIONS (4)
  - Serotonin syndrome [None]
  - Tremor [None]
  - Hypotension [None]
  - Loss of consciousness [None]
